FAERS Safety Report 25188148 (Version 1)
Quarter: 2025Q2

REPORT INFORMATION
  Report Type: Other
  Country: US (occurrence: US)
  Receive Date: 20250411
  Receipt Date: 20250411
  Transmission Date: 20250716
  Serious: Yes (Death, Other)
  Sender: ALVOGEN
  Company Number: US-ALVOGEN-2025096895

PATIENT
  Age: 57 Year
  Sex: Male

DRUGS (7)
  1. GABAPENTIN [Suspect]
     Active Substance: GABAPENTIN
     Indication: Suicide attempt
     Route: 048
  2. AMLODIPINE [Suspect]
     Active Substance: AMLODIPINE BESYLATE
     Indication: Suicide attempt
     Route: 048
  3. METOPROLOL [Suspect]
     Active Substance: METOPROLOL
     Indication: Suicide attempt
     Route: 048
  4. QUETIAPINE [Suspect]
     Active Substance: QUETIAPINE
     Indication: Suicide attempt
     Route: 048
  5. LISINOPRIL [Suspect]
     Active Substance: LISINOPRIL
     Indication: Suicide attempt
     Route: 048
  6. SIMVASTATIN [Suspect]
     Active Substance: SIMVASTATIN
     Indication: Suicide attempt
     Route: 048
  7. APIXABAN [Suspect]
     Active Substance: APIXABAN
     Indication: Suicide attempt
     Route: 048

REACTIONS (1)
  - Completed suicide [Fatal]
